FAERS Safety Report 22613909 (Version 1)
Quarter: 2023Q2

REPORT INFORMATION
  Report Type: Spontaneous
  Country: US (occurrence: US)
  Receive Date: 20230619
  Receipt Date: 20230619
  Transmission Date: 20230722
  Serious: No
  Sender: FDA-Public Use
  Company Number: US-SUN PHARMACEUTICAL INDUSTRIES LTD-2023R1-380732

PATIENT
  Sex: Male

DRUGS (1)
  1. NIACIN [Suspect]
     Active Substance: NIACIN
     Indication: High density lipoprotein decreased
     Dosage: 1500 MILLIGRAM, DAILY
     Route: 065
     Dates: start: 2007

REACTIONS (1)
  - Product residue present [Not Recovered/Not Resolved]
